FAERS Safety Report 7954490-8 (Version None)
Quarter: 2011Q4

REPORT INFORMATION
  Report Type: 
  Country: None (occurrence: None)
  Receive Date: 20111202
  Receipt Date: 20111123
  Transmission Date: 20120403
  Serious: Yes (Hospitalization)
  Sender: FDA-Public Use
  Company Number: IL-JNJFOC-20111111640

PATIENT
  Age: 56 Year
  Sex: Female

DRUGS (1)
  1. REMICADE [Suspect]
     Indication: CROHN'S DISEASE
     Route: 042

REACTIONS (6)
  - CHILLS [None]
  - SKIN DISCOLOURATION [None]
  - INFUSION RELATED REACTION [None]
  - CELLULITIS [None]
  - DYSPNOEA [None]
  - TREATMENT NONCOMPLIANCE [None]
